FAERS Safety Report 24047255 (Version 1)
Quarter: 2024Q3

REPORT INFORMATION
  Report Type: Spontaneous
  Country: US (occurrence: US)
  Receive Date: 20240703
  Receipt Date: 20240703
  Transmission Date: 20241016
  Serious: No
  Sender: BIOCRYST PHARMACEUTICALS
  Company Number: US-BIOCRYST PHARMACEUTICALS, INC.-2024BCR00631

PATIENT
  Sex: Male

DRUGS (1)
  1. ORLADEYO [Suspect]
     Active Substance: BEROTRALSTAT HYDROCHLORIDE
     Dosage: UNK

REACTIONS (1)
  - Dyspepsia [Unknown]

NARRATIVE: CASE EVENT DATE: 20240401
